FAERS Safety Report 11121821 (Version 2)
Quarter: 2015Q2

REPORT INFORMATION
  Report Type: Report from Study
  Country: JP (occurrence: JP)
  Receive Date: 20150519
  Receipt Date: 20150617
  Transmission Date: 20150821
  Serious: Yes (Life-Threatening)
  Sender: FDA-Public Use
  Company Number: JP-SA-2015SA065145

PATIENT
  Age: 5 Year
  Sex: Male
  Weight: 18 kg

DRUGS (17)
  1. PREDONINE [Suspect]
     Active Substance: PREDNISOLONE\PREDNISOLONE ACETATE\PREDNISOLONE SODIUM SUCCINATE
     Indication: ENGRAFTMENT SYNDROME
     Route: 065
     Dates: start: 20120513, end: 20120627
  2. FAMOTIDINE. [Concomitant]
     Active Substance: FAMOTIDINE
     Indication: PROPHYLAXIS AGAINST GASTROINTESTINAL ULCER
     Dates: start: 20120417, end: 20120627
  3. METHOTREXATE [Concomitant]
     Active Substance: METHOTREXATE
     Indication: PROPHYLAXIS AGAINST GRAFT VERSUS HOST DISEASE
     Dates: start: 20120427, end: 20120507
  4. PROGRAF [Suspect]
     Active Substance: TACROLIMUS\TACROLIMUS ANHYDROUS
     Indication: PROPHYLAXIS AGAINST GRAFT VERSUS HOST DISEASE
     Route: 065
     Dates: start: 20120425, end: 20120702
  5. KAYTWO [Concomitant]
     Active Substance: MENATETRENONE
     Indication: THROMBOSIS PROPHYLAXIS
     Dates: start: 20120420, end: 20120610
  6. VFEND [Concomitant]
     Active Substance: VORICONAZOLE
     Indication: PROPHYLAXIS
     Dates: start: 20120417, end: 20120611
  7. HEPARIN SODIUM. [Concomitant]
     Active Substance: HEPARIN SODIUM
     Indication: THROMBOSIS PROPHYLAXIS
     Dates: start: 20120409, end: 20120621
  8. THYMOGLOBULINE [Suspect]
     Active Substance: LAPINE T-LYMPHOCYTE IMMUNE GLOBULIN
     Indication: BONE MARROW CONDITIONING REGIMEN
     Route: 042
     Dates: start: 20120417, end: 20120420
  9. PREDONINE [Suspect]
     Active Substance: PREDNISOLONE\PREDNISOLONE ACETATE\PREDNISOLONE SODIUM SUCCINATE
     Indication: HISTIOCYTOSIS HAEMATOPHAGIC
     Route: 065
     Dates: start: 20120513, end: 20120627
  10. ACICLOVIR [Concomitant]
     Active Substance: ACYCLOVIR
     Indication: INFECTION PROPHYLAXIS
     Dates: start: 20120417, end: 20120613
  11. MIDAZOLAM [Concomitant]
     Active Substance: MIDAZOLAM\MIDAZOLAM HYDROCHLORIDE
     Dates: start: 20120420, end: 20120610
  12. URSO [Concomitant]
     Active Substance: URSODIOL
     Indication: PROPHYLAXIS
     Dates: start: 201011, end: 20120627
  13. POLYMYXIN B SULFATE. [Concomitant]
     Active Substance: POLYMYXIN B SULFATE
     Indication: INFECTION PROPHYLAXIS
     Dates: start: 20120416, end: 20120613
  14. GRAN [Concomitant]
     Active Substance: FILGRASTIM
     Dates: start: 20120503, end: 20120601
  15. ATARAX-P [Concomitant]
     Active Substance: HYDROXYZINE HYDROCHLORIDE
     Indication: PROPHYLAXIS
     Dates: start: 20120501, end: 20120610
  16. PRIMPERAN [Concomitant]
     Active Substance: METOCLOPRAMIDE HYDROCHLORIDE
     Indication: PROPHYLAXIS OF NAUSEA AND VOMITING
     Dates: start: 20120503, end: 20120610
  17. DALTEPARIN SODIUM [Concomitant]
     Active Substance: DALTEPARIN SODIUM
     Indication: PROPHYLAXIS
     Dates: start: 201204, end: 20120703

REACTIONS (4)
  - Infection [Recovered/Resolved]
  - Histiocytosis haematophagic [Recovered/Resolved]
  - Hypertension [Recovered/Resolved]
  - Engraftment syndrome [Recovered/Resolved]

NARRATIVE: CASE EVENT DATE: 20120426
